FAERS Safety Report 22586703 (Version 1)
Quarter: 2023Q2

REPORT INFORMATION
  Report Type: Spontaneous
  Country: US (occurrence: US)
  Receive Date: 20230611
  Receipt Date: 20230611
  Transmission Date: 20230722
  Serious: No
  Sender: FDA-Public Use
  Company Number: US-PERRIGO-23US004188

PATIENT
  Age: 84 Year
  Sex: Male
  Weight: 92.971 kg

DRUGS (10)
  1. DICLOFENAC SODIUM [Suspect]
     Active Substance: DICLOFENAC SODIUM
     Indication: Arthritis
     Dosage: A LITTLE BIT, BID
     Route: 061
     Dates: start: 202302, end: 20230309
  2. DICLOFENAC SODIUM [Suspect]
     Active Substance: DICLOFENAC SODIUM
     Indication: Spondylitis
     Dosage: SEVERAL DROPS, BID
     Route: 061
     Dates: start: 202301, end: 20230309
  3. DICLOFENAC SODIUM [Suspect]
     Active Substance: DICLOFENAC SODIUM
     Indication: Pain
     Dosage: SMALL DAB, BID
     Route: 061
     Dates: start: 202212, end: 202303
  4. FARXIGA [Concomitant]
     Active Substance: DAPAGLIFLOZIN PROPANEDIOL
     Indication: Hypotension
     Dosage: 10 MG, QHS
     Route: 065
     Dates: start: 2021
  5. ASPIRIN [Concomitant]
     Active Substance: ASPIRIN
     Indication: Headache
     Dosage: UNKNOWN, UNKNOWN
     Route: 065
     Dates: start: 1973
  6. METFORMIN [Concomitant]
     Active Substance: METFORMIN HYDROCHLORIDE
     Indication: Product used for unknown indication
     Dosage: 100 MG, BID
     Route: 065
     Dates: start: 2003
  7. GLUCOSAMINE CHONDROITIN [CHONDROITIN SULFATE;GLUCOSAMINE] [Concomitant]
     Indication: Arthralgia
     Dosage: UNK
     Route: 065
     Dates: start: 2003
  8. VITAMINS NOS [Concomitant]
     Active Substance: VITAMINS
     Indication: Supplementation therapy
     Dosage: UNK
     Route: 065
     Dates: start: 2013
  9. FINASTERIDE [Concomitant]
     Active Substance: FINASTERIDE
     Indication: Product used for unknown indication
     Dosage: 5 MG, UNKNOWN
     Route: 065
  10. ATORVASTATIN [Concomitant]
     Active Substance: ATORVASTATIN
     Indication: Product used for unknown indication
     Dosage: 20 MG, UNKNOWN
     Route: 065

REACTIONS (7)
  - Cyst rupture [Recovering/Resolving]
  - Drug effective for unapproved indication [Unknown]
  - Drug ineffective [Unknown]
  - Incorrect product administration duration [Unknown]
  - Wrong technique in product usage process [Unknown]
  - Product administered at inappropriate site [Unknown]
  - Underdose [Unknown]

NARRATIVE: CASE EVENT DATE: 20221201
